FAERS Safety Report 8824305 (Version 1)
Quarter: 2012Q4

REPORT INFORMATION
  Report Type: 
  Country: US (occurrence: US)
  Receive Date: 20121004
  Receipt Date: 20121004
  Transmission Date: 20130627
  Serious: Yes (Other)
  Sender: FDA-Public Use
  Company Number: US-PERRIGO-12US008455

PATIENT
  Age: 51 Year
  Sex: Male
  Weight: 58.96 kg

DRUGS (2)
  1. IBUPROFEN-DIPHENHYDRAMINE CITRATE [Suspect]
     Indication: INSOMNIA
     Dosage: 2 tablets at 2200
     Route: 048
     Dates: start: 20120925, end: 20120925
  2. IBUPROFEN 200MG-DIPHENHYDRAMINE CITRATE 38 MG 050 [Suspect]
     Dosage: 1 tablet at 2400
     Route: 048
     Dates: start: 20120925, end: 20120925

REACTIONS (3)
  - Hallucination [Recovered/Resolved]
  - Hypersensitivity [Recovered/Resolved]
  - Incorrect dose administered [Recovered/Resolved]
